FAERS Safety Report 16885272 (Version 1)
Quarter: 2019Q4

REPORT INFORMATION
  Report Type: Spontaneous
  Country: US (occurrence: US)
  Receive Date: 20190808
  Receipt Date: 20190808
  Transmission Date: 20200122
  Serious: Yes (Other)
  Sender: FDA-Public Use
  Company Number: None

PATIENT
  Age: 68 Year
  Sex: Male
  Weight: 131.54 kg

DRUGS (1)
  1. DORZOLAMIDEHCI/TIMOLOL MALEATE W [Suspect]
     Active Substance: DORZOLAMIDE HYDROCHLORIDE\TIMOLOL MALEATE
     Indication: TOXIC ANTERIOR SEGMENT SYNDROME
     Route: 031

REACTIONS (1)
  - Toxic anterior segment syndrome [None]

NARRATIVE: CASE EVENT DATE: 20190528
